FAERS Safety Report 12244238 (Version 2)
Quarter: 2016Q2

REPORT INFORMATION
  Report Type: Spontaneous
  Country: US (occurrence: US)
  Receive Date: 20160407
  Receipt Date: 20160615
  Transmission Date: 20160815
  Serious: No
  Sender: FDA-Public Use
  Company Number: US-TEVA-643497ACC

PATIENT
  Sex: Female
  Weight: 60.38 kg

DRUGS (1)
  1. PARAGARD T 380A [Suspect]
     Active Substance: COPPER
     Indication: CONTRACEPTION
     Dates: start: 20150928, end: 20151005

REACTIONS (2)
  - Pelvic pain [Unknown]
  - Vaginal haemorrhage [Unknown]
